FAERS Safety Report 13591749 (Version 1)
Quarter: 2017Q2

REPORT INFORMATION
  Report Type: Spontaneous
  Country: GB (occurrence: GB)
  Receive Date: 20170529
  Receipt Date: 20170529
  Transmission Date: 20170830
  Serious: Yes (Other)
  Sender: FDA-Public Use
  Company Number: GB-TEVA-770849ACC

PATIENT
  Age: 51 Year
  Sex: Male
  Weight: 102.51 kg

DRUGS (4)
  1. DOXYCYCLINE HYCLATE. [Suspect]
     Active Substance: DOXYCYCLINE HYCLATE
     Indication: LOWER RESPIRATORY TRACT INFECTION
     Dosage: 200MG THEN 100MG PER DAY.
     Route: 048
     Dates: end: 20161116
  2. DOXYCYCLINE HYCLATE. [Suspect]
     Active Substance: DOXYCYCLINE HYCLATE
     Indication: LOWER RESPIRATORY TRACT INFECTION
     Dosage: 200 MILLIGRAM DAILY; 200MG THEN 100MG PER DAY.
     Route: 048
     Dates: start: 20161111
  3. AMOXICILLIN. [Concomitant]
     Active Substance: AMOXICILLIN
  4. RAMIPRIL. [Concomitant]
     Active Substance: RAMIPRIL
     Indication: HYPERTENSION
     Dosage: 10 MILLIGRAM DAILY;

REACTIONS (4)
  - Asthenia [Recovered/Resolved with Sequelae]
  - Pancreatitis [Unknown]
  - Vomiting [Recovered/Resolved with Sequelae]
  - Chromaturia [Recovered/Resolved with Sequelae]

NARRATIVE: CASE EVENT DATE: 20161112
